FAERS Safety Report 4839256-X (Version None)
Quarter: 2005Q4

REPORT INFORMATION
  Report Type: 
  Country: None (occurrence: None)
  Receive Date: 20051129
  Receipt Date: 20041018
  Transmission Date: 20060501
  Serious: No
  Sender: FDA-Public Use
  Company Number: US-GLAXOSMITHKLINE-A0530213A

PATIENT
  Age: 45 Year
  Sex: Male
  Weight: 114.5 kg

DRUGS (2)
  1. WELLBUTRIN SR [Suspect]
     Indication: DEPRESSION
     Dosage: 200MG PER DAY
     Route: 048
     Dates: start: 20040701, end: 20041015
  2. XANAX [Concomitant]
     Indication: INSOMNIA
     Dosage: .5MG AS REQUIRED
     Route: 048
     Dates: start: 20040820

REACTIONS (2)
  - LIBIDO DECREASED [None]
  - SEMEN VOLUME DECREASED [None]
